FAERS Safety Report 15023314 (Version 1)
Quarter: 2018Q2

REPORT INFORMATION
  Report Type: Report from Study
  Country: US (occurrence: US)
  Receive Date: 20180618
  Receipt Date: 20180618
  Transmission Date: 20180711
  Serious: Yes (Hospitalization, Other)
  Sender: FDA-Public Use
  Company Number: US-EXELIXIS-CABO-18014465

PATIENT
  Age: 47 Year
  Sex: Male

DRUGS (1)
  1. CABOMETYX [Suspect]
     Active Substance: CABOZANTINIB S-MALATE
     Indication: LUNG NEOPLASM MALIGNANT
     Dosage: 60 MG, UNK
     Dates: start: 20180427

REACTIONS (5)
  - Internal haemorrhage [Unknown]
  - Cerebrospinal fluid circulation disorder [Unknown]
  - Off label use [Unknown]
  - Dyspnoea [Unknown]
  - Haematemesis [Unknown]

NARRATIVE: CASE EVENT DATE: 201805
